FAERS Safety Report 13598344 (Version 1)
Quarter: 2017Q2

REPORT INFORMATION
  Report Type: Spontaneous
  Country: US (occurrence: US)
  Receive Date: 20170531
  Receipt Date: 20170531
  Transmission Date: 20170830
  Serious: Yes (Other)
  Sender: FDA-Public Use
  Company Number: US-BAYER-2017-100551

PATIENT
  Sex: Female

DRUGS (1)
  1. MIRENA [Suspect]
     Active Substance: LEVONORGESTREL
     Indication: MENORRHAGIA
     Dosage: 20 MCG/24HR, CONT
     Route: 015
     Dates: start: 201611

REACTIONS (7)
  - Vaginal haemorrhage [None]
  - Genital haemorrhage [None]
  - Amenorrhoea [None]
  - Aggression [None]
  - Breast tenderness [None]
  - Feeling hot [None]
  - Irritability [None]
